FAERS Safety Report 22642028 (Version 1)
Quarter: 2023Q2

REPORT INFORMATION
  Report Type: Other
  Country: None (occurrence: GR)
  Receive Date: 20230626
  Receipt Date: 20230626
  Transmission Date: 20230722
  Serious: Yes (Life-Threatening)
  Sender: FDA-Public Use
  Company Number: GR-B.Braun Medical Inc.-2143127

PATIENT
  Age: 50 Year
  Sex: Female

DRUGS (4)
  1. MEROPENEM\SODIUM CHLORIDE [Suspect]
     Active Substance: MEROPENEM\SODIUM CHLORIDE
     Indication: Antibiotic therapy
  2. LINEZOLID [Suspect]
     Active Substance: LINEZOLID
  3. VANCOMYCIN [Suspect]
     Active Substance: VANCOMYCIN
  4. ISAVUCONAZOLE [Suspect]
     Active Substance: ISAVUCONAZOLE

REACTIONS (1)
  - Drug ineffective [Unknown]
